FAERS Safety Report 25307629 (Version 1)
Quarter: 2025Q2

REPORT INFORMATION
  Report Type: Spontaneous
  Country: JP (occurrence: JP)
  Receive Date: 20250513
  Receipt Date: 20250513
  Transmission Date: 20250717
  Serious: Yes (Other)
  Sender: PFIZER
  Company Number: JP-PFIZER INC-202500063394

PATIENT
  Age: 55 Year
  Sex: Male
  Weight: 75 kg

DRUGS (25)
  1. BEVACIZUMAB [Suspect]
     Active Substance: BEVACIZUMAB
     Indication: Colon cancer
     Dosage: 350 MG, 1X/DAY
     Route: 041
     Dates: start: 20241214, end: 20241214
  2. BEVACIZUMAB [Suspect]
     Active Substance: BEVACIZUMAB
     Dosage: 350 MG, 1X/DAY
     Route: 041
     Dates: start: 20241228, end: 20241228
  3. BEVACIZUMAB [Suspect]
     Active Substance: BEVACIZUMAB
     Dosage: 350 MG, 1X/DAY
     Route: 041
     Dates: start: 20250118, end: 20250118
  4. FLUOROURACIL [Suspect]
     Active Substance: FLUOROURACIL
     Indication: Colon cancer
     Dates: start: 20241214
  5. FLUOROURACIL [Suspect]
     Active Substance: FLUOROURACIL
     Dates: start: 20241228
  6. FLUOROURACIL [Suspect]
     Active Substance: FLUOROURACIL
     Dates: start: 20250118
  7. FLUOROURACIL [Suspect]
     Active Substance: FLUOROURACIL
     Dates: start: 20250201
  8. FLUOROURACIL [Suspect]
     Active Substance: FLUOROURACIL
     Dates: start: 20250215
  9. FLUOROURACIL [Suspect]
     Active Substance: FLUOROURACIL
     Dates: start: 20250301
  10. OXALIPLATIN [Suspect]
     Active Substance: OXALIPLATIN
     Indication: Colon cancer
     Dosage: 150 MG, 1X/DAY
     Route: 041
     Dates: start: 20241214, end: 20241214
  11. OXALIPLATIN [Suspect]
     Active Substance: OXALIPLATIN
     Dosage: 150 MG, 1X/DAY
     Route: 041
     Dates: start: 20241228, end: 20241228
  12. OXALIPLATIN [Suspect]
     Active Substance: OXALIPLATIN
     Dosage: 150 MG, 1X/DAY
     Route: 041
     Dates: start: 20250118, end: 20250118
  13. OXALIPLATIN [Suspect]
     Active Substance: OXALIPLATIN
     Dosage: 150 MG, 1X/DAY
     Route: 041
     Dates: start: 20250201, end: 20250201
  14. OXALIPLATIN [Suspect]
     Active Substance: OXALIPLATIN
     Dosage: 150 MG, 1X/DAY
     Route: 041
     Dates: start: 20250215, end: 20250215
  15. OXALIPLATIN [Suspect]
     Active Substance: OXALIPLATIN
     Dosage: 150 MG, 1X/DAY
     Route: 041
     Dates: start: 20250301, end: 20250301
  16. LEVOLEUCOVORIN CALCIUM [Suspect]
     Active Substance: LEVOLEUCOVORIN CALCIUM
     Indication: Colon cancer
     Dosage: 350 MG, 1X/DAY, LEVOFOLINATE FOR I.V. INFUSION
     Route: 041
     Dates: start: 20241214, end: 20241214
  17. LEVOLEUCOVORIN CALCIUM [Suspect]
     Active Substance: LEVOLEUCOVORIN CALCIUM
     Dosage: 350 MG, 1X/DAY, LEVOFOLINATE FOR I.V. INFUSION
     Route: 041
     Dates: start: 20241228, end: 20241228
  18. LEVOLEUCOVORIN CALCIUM [Suspect]
     Active Substance: LEVOLEUCOVORIN CALCIUM
     Dosage: 350 MG, 1X/DAY, LEVOFOLINATE FOR I.V. INFUSION
     Route: 041
     Dates: start: 20250118, end: 20250118
  19. LEVOLEUCOVORIN CALCIUM [Suspect]
     Active Substance: LEVOLEUCOVORIN CALCIUM
     Dosage: 350 MG, 1X/DAY, LEVOFOLINATE FOR I.V. INFUSION
     Route: 041
     Dates: start: 20250201, end: 20250201
  20. LEVOLEUCOVORIN CALCIUM [Suspect]
     Active Substance: LEVOLEUCOVORIN CALCIUM
     Dosage: 350 MG, 1X/DAY, LEVOFOLINATE FOR I.V. INFUSION
     Route: 041
     Dates: start: 20250215, end: 20250215
  21. LEVOLEUCOVORIN CALCIUM [Suspect]
     Active Substance: LEVOLEUCOVORIN CALCIUM
     Dosage: 350 MG, 1X/DAY, LEVOFOLINATE FOR I.V. INFUSION
     Route: 041
     Dates: start: 20250301, end: 20250301
  22. BEVACIZUMAB-MALY [Suspect]
     Active Substance: BEVACIZUMAB-MALY
     Dosage: 350 MG, 1X/DAY
     Route: 041
     Dates: start: 20250201, end: 20250201
  23. BEVACIZUMAB-MALY [Suspect]
     Active Substance: BEVACIZUMAB-MALY
     Dosage: 350 MG, 1X/DAY
     Route: 041
     Dates: start: 20250215, end: 20250215
  24. BEVACIZUMAB-MALY [Suspect]
     Active Substance: BEVACIZUMAB-MALY
     Dosage: 350 MG, 1X/DAY
     Route: 041
     Dates: start: 20250301, end: 20250301
  25. DECADRON [Concomitant]
     Active Substance: DEXAMETHASONE
     Indication: Chemotherapy
     Dosage: 1 DF 4 MG, 2X/DAY AFTER BREAKFAST AND DINNER
     Dates: start: 20250302, end: 20250303

REACTIONS (2)
  - Deep vein thrombosis [Unknown]
  - Off label use [Unknown]

NARRATIVE: CASE EVENT DATE: 20250315
